FAERS Safety Report 20303537 (Version 2)
Quarter: 2022Q2

REPORT INFORMATION
  Report Type: Spontaneous
  Country: BE (occurrence: BE)
  Receive Date: 20220106
  Receipt Date: 20220408
  Transmission Date: 20220720
  Serious: No
  Sender: FDA-Public Use
  Company Number: BE-NOVARTISPH-NVSC2022BE001160

PATIENT
  Age: 73 Year
  Sex: Female
  Weight: 61 kg

DRUGS (15)
  1. PRAMIPEXOLE DIHYDROCHLORIDE [Suspect]
     Active Substance: PRAMIPEXOLE DIHYDROCHLORIDE
     Indication: Parkinson^s disease
     Dosage: 2 DOSAGE FORM, QD (AFTER START DUODOPA)
     Route: 048
  2. PRAMIPEXOLE DIHYDROCHLORIDE [Suspect]
     Active Substance: PRAMIPEXOLE DIHYDROCHLORIDE
     Dosage: UNK (MD 12.0 ML; CD 4.7 ML/HR DURING 16 HOURS; ED 2.0 ML   )
     Route: 050
     Dates: start: 20211223
  3. PRAMIPEXOLE DIHYDROCHLORIDE [Suspect]
     Active Substance: PRAMIPEXOLE DIHYDROCHLORIDE
     Dosage: UNK MD=11ML, CD=4.6ML/HR DURING 16HRS, ED=2ML  )
     Route: 050
     Dates: start: 20220204, end: 202103
  4. PRAMIPEXOLE DIHYDROCHLORIDE [Suspect]
     Active Substance: PRAMIPEXOLE DIHYDROCHLORIDE
     Dosage: 3 DOSAGE FORM, QD(DISCONTINUED PRIOR TO DUODOPA THERAPY)
     Route: 048
  5. PRAMIPEXOLE DIHYDROCHLORIDE [Suspect]
     Active Substance: PRAMIPEXOLE DIHYDROCHLORIDE
     Dosage: UNK(WITH A LOWER DOSE)
     Route: 048
  6. CARBIDOPA\LEVODOPA [Suspect]
     Active Substance: CARBIDOPA\LEVODOPA
     Indication: Product used for unknown indication
     Dosage: UNK(UNKNOWN DOSAGES)
     Route: 065
     Dates: start: 20190408, end: 20191030
  7. CARBIDOPA\LEVODOPA [Suspect]
     Active Substance: CARBIDOPA\LEVODOPA
     Dosage: UNK ((MD= 12.0 ML, CD= 4.6 ML/HR DURING 16HRS, ED= 2.0 ML)
     Route: 065
     Dates: start: 20191030, end: 20210204
  8. CARBIDOPA\LEVODOPA [Suspect]
     Active Substance: CARBIDOPA\LEVODOPA
     Dosage: UNK (MD= 12.0 ML, CD= 4.8 ML/HR DURING 16HRS, ED= 2.0 ML   )
     Route: 050
     Dates: start: 20210204, end: 202103
  9. CARBIDOPA\LEVODOPA [Suspect]
     Active Substance: CARBIDOPA\LEVODOPA
     Dosage: UNK (MD= 12.0 ML, CD= 4.6 ML/HR DURING 16HRS, ED= 2.0 ML   )
     Route: 050
     Dates: start: 20210310, end: 202103
  10. CARBIDOPA\LEVODOPA [Suspect]
     Active Substance: CARBIDOPA\LEVODOPA
     Dosage: UNK (MD= 12.0 ML, CD= 4.6 ML/HR DURING 16HRS, ED= 2.0 ML)
     Route: 065
     Dates: start: 20210316, end: 20211019
  11. CARBIDOPA\LEVODOPA [Suspect]
     Active Substance: CARBIDOPA\LEVODOPA
     Dosage: UNK((MD= 12.0 ML, CD= 4.8 ML/HR DURING 16HRS, ED= 2.0 ML  )
     Route: 065
     Dates: start: 20211019, end: 20211223
  12. CARBIDOPA\LEVODOPA [Suspect]
     Active Substance: CARBIDOPA\LEVODOPA
     Dosage: UNK (MD= 12.0 ML, CD= 4.8 ML/HR DURING 16HRS, ED= 2.0 ML   )
     Route: 050
     Dates: start: 20211223
  13. BENSERAZIDE\LEVODOPA [Concomitant]
     Active Substance: BENSERAZIDE\LEVODOPA
     Indication: Parkinson^s disease
     Dosage: 1 DOSAGE FORM, QD (FORM STRENGTH: 100MG/25MG; UNIT DOSE: 3 CAPSULES, 125)
     Route: 048
  14. FLUDROCORTISONE [Concomitant]
     Active Substance: FLUDROCORTISONE
     Indication: Orthostatic hypotension
     Route: 048
  15. BENSERAZIDE\LEVODOPA [Concomitant]
     Active Substance: BENSERAZIDE\LEVODOPA
     Indication: Parkinson^s disease
     Dosage: UNK, PRN (WHEN NECESSARY)
     Route: 048

REACTIONS (8)
  - Freezing phenomenon [Unknown]
  - On and off phenomenon [Not Recovered/Not Resolved]
  - Hyperventilation [Unknown]
  - Keloid scar [Unknown]
  - Stress [Unknown]
  - Polyneuropathy [Unknown]
  - Respiratory dyskinesia [Recovered/Resolved]
  - Hallucination [Not Recovered/Not Resolved]
